FAERS Safety Report 5034585-1 (Version None)
Quarter: 2006Q2

REPORT INFORMATION
  Report Type: 
  Country: None (occurrence: None)
  Receive Date: 20060621
  Receipt Date: 20060607
  Transmission Date: 20061013
  Serious: Yes (Congenital Anomaly)
  Sender: FDA-Public Use
  Company Number: RGD: 64555/79

PATIENT
  Age: 6 Month
  Sex: Male

DRUGS (1)
  1. POSTINOR-2 [Suspect]
     Dosage: TRANSPLACENTAL
     Route: 064

REACTIONS (12)
  - CARDIAC ARREST [None]
  - DOUBLE OUTLET RIGHT VENTRICLE [None]
  - DRUG EXPOSURE DURING PREGNANCY [None]
  - HEART DISEASE CONGENITAL [None]
  - LUNG INFECTION [None]
  - MULTI-ORGAN FAILURE [None]
  - MULTIPLE CARDIAC DEFECTS [None]
  - NEONATAL DISORDER [None]
  - PNEUMONIA [None]
  - POSTOPERATIVE INFECTION [None]
  - PREGNANCY AFTER POST COITAL CONTRACEPTION [None]
  - TRANSPOSITION OF THE GREAT VESSELS [None]
